FAERS Safety Report 4922855-4 (Version None)
Quarter: 2006Q1

REPORT INFORMATION
  Report Type: 
  Country: None (occurrence: None)
  Receive Date: 20060224
  Receipt Date: 20051025
  Transmission Date: 20060701
  Serious: Yes (Hospitalization)
  Sender: FDA-Public Use
  Company Number: US-MERCK-0510USA09185

PATIENT
  Age: 51 Year
  Sex: Male
  Weight: 125 kg

DRUGS (7)
  1. VIOXX [Suspect]
     Indication: ARTHRITIS
     Route: 048
     Dates: start: 20030515, end: 20030930
  2. VIOXX [Suspect]
     Indication: PAIN
     Route: 048
     Dates: start: 20030515, end: 20030930
  3. ALTACE [Concomitant]
     Indication: HYPERTENSION
     Route: 048
     Dates: start: 20011001, end: 20050901
  4. ASPIRIN [Concomitant]
     Indication: PROPHYLAXIS
     Route: 065
     Dates: start: 20030101
  5. ASPIRIN [Concomitant]
     Indication: RHEUMATOID ARTHRITIS
     Route: 065
     Dates: start: 20030101
  6. GLUCOPHAGE [Concomitant]
     Route: 065
  7. GLYBURIDE [Concomitant]
     Route: 065

REACTIONS (4)
  - HYPOKALAEMIA [None]
  - MYOCARDIAL INFARCTION [None]
  - OBESITY [None]
  - OEDEMA PERIPHERAL [None]
